FAERS Safety Report 6973136-9 (Version None)
Quarter: 2010Q3

REPORT INFORMATION
  Report Type: 
  Country: None (occurrence: None)
  Receive Date: 20100909
  Receipt Date: 20100831
  Transmission Date: 20110219
  Serious: Yes (Death, Life-Threatening)
  Sender: FDA-Public Use
  Company Number: FI-ROCHE-661511

PATIENT
  Age: 34 Year
  Sex: Female
  Weight: 100 kg

DRUGS (3)
  1. AVASTIN [Suspect]
     Dosage: DOSE: 5 MG/KG (500 MG)
     Route: 042
     Dates: start: 20090907, end: 20090907
  2. IRINOTECAN HCL [Concomitant]
     Route: 042
     Dates: start: 20090814
  3. FLUOROURACIL [Concomitant]
     Route: 042
     Dates: start: 20090814

REACTIONS (3)
  - DISEASE PROGRESSION [None]
  - GASTROINTESTINAL PERFORATION [None]
  - PULMONARY EMBOLISM [None]
